FAERS Safety Report 7288860-0 (Version None)
Quarter: 2011Q1

REPORT INFORMATION
  Report Type: 
  Country: None (occurrence: None)
  Receive Date: 20110211
  Receipt Date: 20110202
  Transmission Date: 20110831
  Serious: Yes (Other)
  Sender: FDA-Public Use
  Company Number: US-JNJFOC-20110201505

PATIENT
  Sex: Female

DRUGS (9)
  1. COREG [Concomitant]
  2. BUMEX [Concomitant]
  3. AGGRENOX [Concomitant]
  4. LIPITOR [Concomitant]
  5. PROTONIX [Concomitant]
  6. FENOFIBRATE [Concomitant]
  7. LIALDA [Concomitant]
  8. REMICADE [Suspect]
     Indication: COLITIS ULCERATIVE
     Route: 042
  9. PREDNISONE TAB [Concomitant]

REACTIONS (1)
  - DIABETES MELLITUS [None]
